FAERS Safety Report 15974435 (Version 2)
Quarter: 2019Q1

REPORT INFORMATION
  Report Type: Spontaneous
  Country: US (occurrence: US)
  Receive Date: 20190218
  Receipt Date: 20190218
  Transmission Date: 20190418
  Serious: Yes (Other)
  Sender: FDA-Public Use
  Company Number: US-SA-2019SA042394

PATIENT
  Age: 40 Year
  Sex: Female

DRUGS (1)
  1. LEMTRADA [Suspect]
     Active Substance: ALEMTUZUMAB
     Dosage: 1
     Route: 041
     Dates: start: 20190107, end: 20190109

REACTIONS (6)
  - Haemoptysis [Unknown]
  - Chest X-ray abnormal [Unknown]
  - Bradycardia [Not Recovered/Not Resolved]
  - Pulmonary alveolar haemorrhage [Unknown]
  - Pneumonitis [Unknown]
  - Cough [Unknown]

NARRATIVE: CASE EVENT DATE: 20190109
